FAERS Safety Report 19229718 (Version 1)
Quarter: 2021Q2

REPORT INFORMATION
  Report Type: Spontaneous
  Country: US (occurrence: US)
  Receive Date: 20210507
  Receipt Date: 20210507
  Transmission Date: 20210717
  Serious: Yes (Other)
  Sender: FDA-Public Use
  Company Number: US-SA-2021SA147054

PATIENT
  Sex: Female

DRUGS (3)
  1. NUCALA [Concomitant]
     Active Substance: MEPOLIZUMAB
  2. DUPIXENT [Suspect]
     Active Substance: DUPILUMAB
     Dosage: UNK
     Dates: start: 202104
  3. COVID?19 VACCINE NOS. [Concomitant]
     Active Substance: COVID-19 VACCINE NOS

REACTIONS (1)
  - Anaphylactic shock [Unknown]
